FAERS Safety Report 24449495 (Version 1)
Quarter: 2024Q4

REPORT INFORMATION
  Report Type: Spontaneous
  Country: CA (occurrence: CA)
  Receive Date: 20241017
  Receipt Date: 20241017
  Transmission Date: 20250114
  Serious: Yes (Other)
  Sender: ORGANON
  Company Number: CA-BAYER-2024A144430

PATIENT
  Age: 78 Year
  Sex: Male

DRUGS (1)
  1. DESLORATADINE [Suspect]
     Active Substance: DESLORATADINE
     Dosage: 5 MG
     Route: 065
     Dates: start: 20240914, end: 20240914

REACTIONS (3)
  - Hallucination, visual [Unknown]
  - Diarrhoea [Unknown]
  - Coordination abnormal [Unknown]

NARRATIVE: CASE EVENT DATE: 20240914
